FAERS Safety Report 24012105 (Version 2)
Quarter: 2024Q3

REPORT INFORMATION
  Report Type: Spontaneous
  Country: US (occurrence: US)
  Receive Date: 20240625
  Receipt Date: 20240807
  Transmission Date: 20241016
  Serious: No
  Sender: SANOFI AVENTIS
  Company Number: US-SA-SAC20240620000698

PATIENT
  Age: 56 Year
  Sex: Male

DRUGS (3)
  1. DUPIXENT [Suspect]
     Active Substance: DUPILUMAB
     Indication: Nasal polyps
     Dosage: 300 MG, QOW
     Route: 058
     Dates: start: 202404
  2. BUSH [Concomitant]
     Dosage: UNK
  3. PREDNISONE [Concomitant]
     Active Substance: PREDNISONE

REACTIONS (1)
  - Pain in extremity [Recovering/Resolving]

NARRATIVE: CASE EVENT DATE: 20240501
